FAERS Safety Report 18189419 (Version 2)
Quarter: 2020Q3

REPORT INFORMATION
  Report Type: Spontaneous
  Country: BR (occurrence: BR)
  Receive Date: 20200824
  Receipt Date: 20200827
  Transmission Date: 20201103
  Serious: Yes (Other)
  Sender: FDA-Public Use
  Company Number: BR-SHIRE-BR202027125

PATIENT

DRUGS (3)
  1. ENTYVIO [Suspect]
     Active Substance: VEDOLIZUMAB
     Indication: COLITIS ULCERATIVE
     Dosage: 300 MILLIGRAM (WEEKS 0,2,6 AND THEN EVERY 8 WEEKS)
     Route: 042
     Dates: start: 201804
  2. ENTYVIO [Suspect]
     Active Substance: VEDOLIZUMAB
     Dosage: 300 MILLIGRAM, EVERY 4 WK
     Route: 042
     Dates: start: 201804
  3. MESACOL MMX [Suspect]
     Active Substance: MESALAMINE
     Indication: COLITIS ULCERATIVE
     Dosage: 3600 MILLIGRAM, 1X/DAY:QD
     Route: 048
     Dates: start: 2017

REACTIONS (3)
  - Headache [Unknown]
  - Haemorrhage [Unknown]
  - Haematochezia [Unknown]
